FAERS Safety Report 8432864-9 (Version None)
Quarter: 2012Q2

REPORT INFORMATION
  Report Type: 
  Country: None (occurrence: None)
  Receive Date: 20120323
  Receipt Date: 20110915
  Transmission Date: 20120825
  Serious: Yes (Hospitalization)
  Sender: FDA-Public Use
  Company Number: 163-21880-11071249

PATIENT
  Age: 92 Year
  Sex: Female

DRUGS (26)
  1. CALCIUM CARBONATE [Concomitant]
  2. CRANBERRY FRUIT CON WITH VITAMIN C + E (ALL OTHER NON-THERAPEUTIC PROD [Concomitant]
  3. VITAMIN E [Concomitant]
  4. OMEGA 3-6-9 (PELAGO) [Concomitant]
  5. BILBERRY (MYRTILLUS) [Concomitant]
  6. LUMIGAN [Concomitant]
  7. SYSTANE ULTRA (RHINARIS) [Concomitant]
  8. WELL HEART (ALL OTHER THERAPEUTIC PRODUCTS) [Concomitant]
  9. LASIX [Concomitant]
  10. POTASSIUM CHLORIDE [Concomitant]
  11. COLON SHIELD (ALL OTHER THERAPEUTIC PRODUCTS) [Concomitant]
  12. DORZOLAMIDE [Concomitant]
  13. RESTASIS [Concomitant]
  14. REVLIMID [Suspect]
     Indication: MYELODYSPLASTIC SYNDROME
     Dosage: 5 MG, 1 IN 1 D, PO, 10 MG, 1 IN 1 D, PO
     Route: 048
     Dates: start: 20110328
  15. REVLIMID [Suspect]
     Indication: MYELODYSPLASTIC SYNDROME
     Dosage: 5 MG, 1 IN 1 D, PO, 10 MG, 1 IN 1 D, PO
     Route: 048
     Dates: start: 20110523, end: 20110610
  16. PRAZOSIN GITS [Concomitant]
  17. ASCORBIC ACID [Concomitant]
  18. FLAX SEED OIL (LINSEED OIL) [Concomitant]
  19. MULTIVITAMIN [Concomitant]
  20. CALCIUM + VITAMIN D (CALCIUM WITH VITAMIN D) [Concomitant]
  21. LIPITOR [Concomitant]
  22. SYNTHROID [Concomitant]
  23. ULTRA LECITHIN (LECITHIN) [Concomitant]
  24. LUTEIN (XANTOFYL) [Concomitant]
  25. FUROSEMIDE [Concomitant]
  26. CENTRUM SILVER (CENTRUM SILVER) [Concomitant]

REACTIONS (1)
  - PLATELET COUNT DECREASED [None]
